FAERS Safety Report 15805978 (Version 3)
Quarter: 2019Q1

REPORT INFORMATION
  Report Type: Report from Study
  Country: CA (occurrence: CA)
  Receive Date: 20190110
  Receipt Date: 20190307
  Transmission Date: 20190417
  Serious: Yes (Other)
  Sender: FDA-Public Use
  Company Number: CA-NALPROPION PHARMACEUTICALS INC.-2018-006404

PATIENT

DRUGS (8)
  1. CONTRAVE [Suspect]
     Active Substance: BUPROPION HYDROCHLORIDE\NALTREXONE HYDROCHLORIDE
     Dosage: 2 TABLETS A DAY (1 DOSAGE FORMS,2 IN 1 D)
     Route: 048
     Dates: start: 20190107, end: 20190113
  2. ADVAIR HFA [Concomitant]
     Active Substance: FLUTICASONE PROPIONATE\SALMETEROL XINAFOATE
     Indication: RESPIRATORY DISORDER
     Dosage: AS NEEDED
     Route: 048
  3. FUCIDIN (FUSIDIC ACID) [Concomitant]
     Active Substance: FUSIDIC ACID
     Indication: SKIN INFECTION
     Dosage: AS NEEDED
     Route: 061
  4. CONTRAVE [Suspect]
     Active Substance: BUPROPION HYDROCHLORIDE\NALTREXONE HYDROCHLORIDE
     Indication: WEIGHT CONTROL
     Dosage: ONE TABLET IN THE MORNING (1 DOSAGE FORMS,1 IN 1 D)
     Route: 048
     Dates: start: 20181223, end: 20190106
  5. CONTRAVE [Suspect]
     Active Substance: BUPROPION HYDROCHLORIDE\NALTREXONE HYDROCHLORIDE
     Dosage: 4 DOSAGE FORMS (2 DOSAGE FORMS,2 IN 1 D)
     Route: 048
     Dates: start: 20190121
  6. CONTRAVE [Suspect]
     Active Substance: BUPROPION HYDROCHLORIDE\NALTREXONE HYDROCHLORIDE
     Dosage: TWO TABLET IN THE MORNING, 1 TABLET IN EVENING (2 IN 1 D)
     Route: 048
     Dates: start: 20190114, end: 201901
  7. LAMISIL [Concomitant]
     Active Substance: TERBINAFINE HYDROCHLORIDE
     Indication: SKIN INFECTION
     Dosage: AS NEEDED
     Route: 061
  8. LIPITOR [Concomitant]
     Active Substance: ATORVASTATIN CALCIUM
     Indication: BLOOD CHOLESTEROL ABNORMAL
     Dosage: AT NIGHT (10 MG)
     Route: 048

REACTIONS (14)
  - Suicidal ideation [Recovered/Resolved]
  - Somnolence [Not Recovered/Not Resolved]
  - Anxiety [Not Recovered/Not Resolved]
  - Feeling abnormal [Not Recovered/Not Resolved]
  - Ejaculation delayed [Not Recovered/Not Resolved]
  - Dizziness [Not Recovered/Not Resolved]
  - Limb discomfort [Not Recovered/Not Resolved]
  - Nausea [Not Recovered/Not Resolved]
  - Sexual dysfunction [Not Recovered/Not Resolved]
  - Hyporeflexia [Not Recovered/Not Resolved]
  - Ocular discomfort [Not Recovered/Not Resolved]
  - Drug titration error [Unknown]
  - Dry mouth [Not Recovered/Not Resolved]
  - Eye disorder [Not Recovered/Not Resolved]

NARRATIVE: CASE EVENT DATE: 201812
